FAERS Safety Report 6453708-0 (Version None)
Quarter: 2009Q4

REPORT INFORMATION
  Report Type: 
  Country: None (occurrence: None)
  Receive Date: 20091124
  Receipt Date: 20091114
  Transmission Date: 20100525
  Serious: Yes (Hospitalization, Other)
  Sender: FDA-Public Use
  Company Number: TH-JNJFOC-20091003951

PATIENT
  Sex: Male
  Weight: 65 kg

DRUGS (9)
  1. DORIPENEM [Suspect]
     Indication: PNEUMONIA
     Route: 041
     Dates: start: 20090908, end: 20090922
  2. CIPROFLOXACIN [Suspect]
     Route: 065
  3. CIPROFLOXACIN [Suspect]
     Route: 065
  4. CIPROFLOXACIN [Suspect]
     Indication: PNEUMONIA
     Route: 065
  5. VANCOMYCIN [Suspect]
     Route: 065
  6. VANCOMYCIN [Suspect]
     Indication: PNEUMONIA
     Route: 065
  7. COLISTIN [Suspect]
     Route: 065
  8. COLISTIN [Suspect]
     Indication: PNEUMONIA
     Route: 065
  9. CEFTAZIDIME [Concomitant]
     Indication: PNEUMONIA
     Route: 065

REACTIONS (1)
  - RENAL FAILURE ACUTE [None]
